FAERS Safety Report 5749886-9 (Version None)
Quarter: 2008Q2

REPORT INFORMATION
  Report Type: 
  Country: None (occurrence: None)
  Receive Date: 20080522
  Receipt Date: 20080522
  Transmission Date: 20081010
  Serious: Yes (Other)
  Sender: FDA-Public Use
  Company Number: None

PATIENT
  Sex: Male
  Weight: 80.2867 kg

DRUGS (2)
  1. CARVEDILOL [Suspect]
     Indication: CARDIAC FAILURE CONGESTIVE
     Dosage: 6.25MG BID PO
     Route: 048
     Dates: start: 20080401
  2. CARVEDILOL [Suspect]
     Indication: ISCHAEMIC CARDIOMYOPATHY
     Dosage: 6.25MG BID PO
     Route: 048
     Dates: start: 20080401

REACTIONS (2)
  - GASTROINTESTINAL HYPERMOTILITY [None]
  - INSOMNIA [None]
